FAERS Safety Report 5475427-X (Version None)
Quarter: 2007Q4

REPORT INFORMATION
  Report Type: 
  Country: None (occurrence: None)
  Receive Date: 20071003
  Receipt Date: 20070921
  Transmission Date: 20080405
  Serious: Yes (Hospitalization)
  Sender: FDA-Public Use
  Company Number: US-JNJFOC-20070605808

PATIENT
  Sex: Female
  Weight: 79.83 kg

DRUGS (12)
  1. REMICADE [Suspect]
     Indication: CROHN'S DISEASE
     Route: 042
  2. REMICADE [Suspect]
     Indication: ANKYLOSING SPONDYLITIS
     Dosage: 4 (PLUS) VIALS SOMETIME BEFORE 2002
     Route: 042
  3. GLIPIZIDE [Concomitant]
     Route: 048
  4. TOPROL-XL [Concomitant]
     Route: 048
  5. HYZAAR [Concomitant]
     Route: 048
  6. PENTASA [Concomitant]
     Route: 048
  7. KAY CIEL DURA-TABS [Concomitant]
     Route: 048
  8. RANITIDINE [Concomitant]
     Route: 048
  9. MULTVITAMINS [Concomitant]
     Route: 048
  10. PERCOCET [Concomitant]
  11. DARVOCET [Concomitant]
  12. ARTHRITIS CREAM [Concomitant]
     Route: 061

REACTIONS (4)
  - DIARRHOEA [None]
  - PNEUMONIA [None]
  - PULMONARY GRANULOMA [None]
  - VOMITING [None]
